FAERS Safety Report 16089836 (Version 1)
Quarter: 2019Q1

REPORT INFORMATION
  Report Type: Spontaneous
  Country: US (occurrence: US)
  Receive Date: 20190215
  Receipt Date: 20190215
  Transmission Date: 20190418
  Serious: No
  Sender: FDA-Public Use
  Company Number: None

PATIENT
  Age: 67 Year
  Sex: Male

DRUGS (1)
  1. BEXAROTENE CAP 75MG [Suspect]
     Active Substance: BEXAROTENE

REACTIONS (2)
  - Xerophthalmia [None]
  - Visual impairment [None]

NARRATIVE: CASE EVENT DATE: 20190214
